FAERS Safety Report 7490246-0 (Version None)
Quarter: 2011Q2

REPORT INFORMATION
  Report Type: 
  Country: None (occurrence: None)
  Receive Date: 20110512
  Receipt Date: 20110223
  Transmission Date: 20111010
  Serious: Yes (Hospitalization)
  Sender: FDA-Public Use
  Company Number: AU-022191

PATIENT
  Age: 88 Year
  Sex: Male

DRUGS (6)
  1. ASPIRIN [Concomitant]
  2. METOPROLOL TARTRATE [Concomitant]
  3. FOLIC ACID [Concomitant]
  4. ALLOPURINOL [Concomitant]
  5. (CHLORAMBUCIL) [Suspect]
     Indication: CHRONIC LYMPHOCYTIC LEUKAEMIA
     Dates: start: 20100720, end: 20101102
  6. TRAMADOL HYDROCHLORIDE [Concomitant]

REACTIONS (7)
  - URINARY TRACT INFECTION [None]
  - ANAEMIA HAEMOLYTIC AUTOIMMUNE [None]
  - CYSTITIS [None]
  - WHITE BLOOD CELL COUNT INCREASED [None]
  - PLATELET COUNT DECREASED [None]
  - BACTERIAL TEST POSITIVE [None]
  - ANAEMIA [None]
